FAERS Safety Report 8050639-X (Version None)
Quarter: 2012Q1

REPORT INFORMATION
  Report Type: 
  Country: None (occurrence: None)
  Receive Date: 20120117
  Receipt Date: 20120117
  Transmission Date: 20120608
  Serious: Yes (Other)
  Sender: FDA-Public Use
  Company Number: None

PATIENT
  Age: 41 Year
  Sex: Female
  Weight: 61.234 kg

DRUGS (1)
  1. GONAL-F [Suspect]
     Indication: INFERTILITY
     Dosage: 300 IU
     Route: 058
     Dates: start: 20111228, end: 20120106

REACTIONS (3)
  - HEART RATE INCREASED [None]
  - CHEST PAIN [None]
  - PALPITATIONS [None]
